FAERS Safety Report 9194290 (Version 2)
Quarter: 2013Q2

REPORT INFORMATION
  Report Type: Spontaneous
  Country: US (occurrence: US)
  Receive Date: 20130327
  Receipt Date: 20130404
  Transmission Date: 20140414
  Serious: Yes (Other)
  Sender: FDA-Public Use
  Company Number: CHPA2013US005220

PATIENT
  Age: 90 Year
  Sex: Female

DRUGS (1)
  1. VOLTAREN GEL [Suspect]
     Indication: ARTHRALGIA
     Dosage: UNK, UNK
     Route: 061

REACTIONS (6)
  - Back pain [Not Recovered/Not Resolved]
  - Activities of daily living impaired [Unknown]
  - Off label use [Unknown]
  - Therapeutic response unexpected [Unknown]
  - Wrong technique in drug usage process [Unknown]
  - Drug dispensing error [Unknown]
